FAERS Safety Report 8847415 (Version 3)
Quarter: 2012Q4

REPORT INFORMATION
  Report Type: 
  Country: US (occurrence: US)
  Receive Date: 20121018
  Receipt Date: 20121108
  Transmission Date: 20130627
  Serious: Yes (Other)
  Sender: FDA-Public Use
  Company Number: US-PFIZER INC-2012259530

PATIENT
  Age: 55 Year
  Sex: Male

DRUGS (4)
  1. CELEBREX [Suspect]
     Indication: PAIN
     Dosage: 200 mg, 1x/day
     Dates: start: 201208
  2. CELEBREX [Suspect]
     Dosage: 400 mg, every other day
  3. CELEBREX [Suspect]
     Dosage: 200 mg, UNK
  4. GABAPENTIN [Concomitant]
     Indication: NERVE PAIN
     Dosage: 350 mg, daily

REACTIONS (9)
  - Blood pressure increased [Unknown]
  - Dry eye [Unknown]
  - Eye irritation [Unknown]
  - Blood glucose increased [Unknown]
  - Chest discomfort [Unknown]
  - Heart rate increased [Unknown]
  - Dyspnoea [Unknown]
  - Influenza like illness [Unknown]
  - Paranasal sinus hypersecretion [Unknown]
